FAERS Safety Report 6727871-8 (Version None)
Quarter: 2010Q2

REPORT INFORMATION
  Report Type: 
  Country: None (occurrence: None)
  Receive Date: 20100517
  Receipt Date: 20100504
  Transmission Date: 20101027
  Serious: Yes (Hospitalization, Other)
  Sender: FDA-Public Use
  Company Number: ES-ELI_LILLY_AND_COMPANY-ES201005001301

PATIENT
  Sex: Male
  Weight: 55 kg

DRUGS (16)
  1. FORTEO [Suspect]
     Indication: OSTEOPOROSIS
     Dosage: 20 UG, DAILY (1/D)
     Route: 058
     Dates: start: 20100222, end: 20100420
  2. NATECAL [Concomitant]
     Indication: OSTEOPOROSIS
     Dosage: UNK, DAILY (1/D)
     Route: 048
  3. PARAPRES [Concomitant]
     Indication: HYPERTENSION
     Dosage: UNK, UNKNOWN
     Route: 048
  4. TRANKIMAZIN [Concomitant]
     Indication: DEPRESSION
     Dosage: UNK, UNKNOWN
     Route: 048
  5. ACFOL [Concomitant]
     Dosage: UNK, UNKNOWN
     Route: 048
  6. BOI K [Concomitant]
     Dosage: UNK, UNKNOWN
     Route: 048
  7. VORICONAZOLE [Concomitant]
     Dosage: UNK, UNKNOWN
     Route: 048
  8. MIZOLASTINE [Concomitant]
     Dosage: UNK, UNKNOWN
     Route: 048
  9. SPIRIVA [Concomitant]
     Dosage: UNK, UNKNOWN
     Route: 048
  10. FLUMIL /00082801/ [Concomitant]
     Indication: RESPIRATORY DISORDER
     Dosage: UNK, UNKNOWN
     Route: 048
  11. DICLOFENACO                        /00372302/ [Concomitant]
     Dosage: UNK, UNKNOWN
     Route: 048
  12. CARDIL                             /00489702/ [Concomitant]
     Dosage: UNK, UNKNOWN
     Route: 048
  13. FUROSEMIDA                         /00032602/ [Concomitant]
     Indication: DIURETIC THERAPY
     Dosage: UNK, UNKNOWN
     Route: 048
  14. SEROXAT /00830802/ [Concomitant]
     Indication: DEPRESSION
     Dosage: UNK, UNKNOWN
     Route: 048
  15. KILOR [Concomitant]
     Dosage: UNK, UNKNOWN
     Route: 048
  16. METRONIDAZOLE [Concomitant]
     Dosage: 500 MG, UNKNOWN
     Route: 048

REACTIONS (5)
  - ABASIA [None]
  - DIARRHOEA [None]
  - FATIGUE [None]
  - HEADACHE [None]
  - WEIGHT DECREASED [None]
